FAERS Safety Report 15164046 (Version 4)
Quarter: 2018Q3

REPORT INFORMATION
  Report Type: Spontaneous
  Country: DE (occurrence: DE)
  Receive Date: 20180719
  Receipt Date: 20180926
  Transmission Date: 20181010
  Serious: Yes (Life-Threatening, Hospitalization, Other)
  Sender: FDA-Public Use
  Company Number: DE-AUROBINDO-AUR-APL-2018-036199

PATIENT
  Age: 88 Year
  Sex: Male

DRUGS (12)
  1. ENTRESTO [Suspect]
     Active Substance: SACUBITRIL\VALSARTAN
     Indication: CARDIAC DISORDER
     Dosage: 194 MILLIGRAM, ONCE A DAY, TAKING FOR YEARS
     Route: 048
     Dates: end: 20171208
  2. ULTIBRO BREEZHALER [Concomitant]
     Active Substance: GLYCOPYRRONIUM\INDACATEROL
     Indication: PRODUCT USED FOR UNKNOWN INDICATION
     Dosage: 63 MICROGRAM, ONCE A DAY, DOSAGE FORM: UNSPECIFIED, DOSE: 63/143 UG; FOR YEARS
     Route: 048
  3. PANTOZOL [Concomitant]
     Active Substance: PANTOPRAZOLE SODIUM
     Indication: PRODUCT USED FOR UNKNOWN INDICATION
     Dosage: 20 MILLIGRAM, DAILY,DOSAGE FORM: UNSPECIFIED, FOR YEARS
     Route: 048
  4. PIPAMPERONE [Suspect]
     Active Substance: PIPAMPERONE
     Dosage: 60 MILLIGRAM, ONCE A DAY
     Route: 048
     Dates: start: 20171129
  5. ACETYLSALICYLIC ACID [Concomitant]
     Active Substance: ASPIRIN
     Indication: PRODUCT USED FOR UNKNOWN INDICATION
     Dosage: 100 MILLIGRAM, ONCE A DAY, DOSAGE FORM: UNSPECIFIED, DOSE: 100 (UNITS UNSPECIFIED); FOR YEARS
     Route: 065
  6. NITRENDIPIN [Suspect]
     Active Substance: NITRENDIPINE
     Indication: CARDIAC DISORDER
     Dosage: 30 MILLIGRAM, ONCE A DAY, DOSAGE FORM: UNSPECIFIED, FOR YEARS
     Route: 048
  7. RISPERIDONE. [Interacting]
     Active Substance: RISPERIDONE
     Indication: PRODUCT USED FOR UNKNOWN INDICATION
     Dosage: 0.5 MILLIGRAM, ONCE A DAY
     Route: 048
     Dates: start: 20171126, end: 20171127
  8. RISPERIDONE. [Interacting]
     Active Substance: RISPERIDONE
     Dosage: 1 MILLIGRAM, ONCE A DAY, DOSAGE FORM: UNSPECIFIED
     Route: 048
     Dates: start: 20171128
  9. SALBUTAMOL [Concomitant]
     Active Substance: ALBUTEROL
     Indication: PRODUCT USED FOR UNKNOWN INDICATION
     Dosage: 0.12 MICROGRAM, ONCE A DAY, DOSAGE FORM: UNSPECIFIED, FOR YEARS
     Route: 048
  10. BISOPROLOL [Suspect]
     Active Substance: BISOPROLOL
     Indication: CARDIAC DISORDER
     Dosage: 2.5 MILLIGRAM, ONCE A DAY, DOSAGE FORM: UNSPECIFIED, FOR YEARS
     Route: 048
  11. PIPAMPERONE [Suspect]
     Active Substance: PIPAMPERONE
     Indication: PRODUCT USED FOR UNKNOWN INDICATION
     Dosage: 40 MILLIGRAM, ONCE A DAY
     Route: 048
     Dates: start: 20171126, end: 20171128
  12. SIMVASTATIN. [Concomitant]
     Active Substance: SIMVASTATIN
     Indication: PRODUCT USED FOR UNKNOWN INDICATION
     Dosage: 40 MILLIGRAM, ONCE A DAY, DOSAGE FORM: UNSPECIFIED, FOR YEARS
     Route: 048

REACTIONS (4)
  - Dizziness [Recovered/Resolved]
  - Drug interaction [Recovered/Resolved]
  - Hypotension [Recovered/Resolved]
  - Loss of consciousness [Recovered/Resolved]

NARRATIVE: CASE EVENT DATE: 2017
